FAERS Safety Report 19242077 (Version 1)
Quarter: 2021Q2

REPORT INFORMATION
  Report Type: Spontaneous
  Country: US (occurrence: US)
  Receive Date: 20210510
  Receipt Date: 20210510
  Transmission Date: 20210717
  Serious: Yes (Other)
  Sender: FDA-Public Use
  Company Number: US-TEVA-2021-US-1909242

PATIENT
  Sex: Female

DRUGS (8)
  1. CLONAZEPAM. [Suspect]
     Active Substance: CLONAZEPAM
     Indication: ANXIETY
     Route: 065
     Dates: start: 2014
  2. DOXYCYCLINE. [Suspect]
     Active Substance: DOXYCYCLINE
     Route: 065
  3. SPIRIVA [Concomitant]
     Active Substance: TIOTROPIUM BROMIDE MONOHYDRATE
  4. PREDNISOLONE. [Concomitant]
     Active Substance: PREDNISOLONE
  5. ALTEPLASE. [Concomitant]
     Active Substance: ALTEPLASE
  6. ADVAIR HFA [Concomitant]
     Active Substance: FLUTICASONE PROPIONATE\SALMETEROL XINAFOATE
  7. LEVOTHYROXIN [Concomitant]
     Active Substance: LEVOTHYROXINE
  8. GAMMAGAURD [Concomitant]

REACTIONS (7)
  - Drug ineffective [Unknown]
  - Immunodeficiency [Unknown]
  - Adverse drug reaction [Unknown]
  - Gastrointestinal disorder [Unknown]
  - Weight fluctuation [Unknown]
  - Bronchitis [Unknown]
  - Fatigue [Unknown]
